FAERS Safety Report 6969026-8 (Version None)
Quarter: 2010Q3

REPORT INFORMATION
  Report Type: 
  Country: None (occurrence: None)
  Receive Date: 20100907
  Receipt Date: 20100826
  Transmission Date: 20110219
  Serious: No
  Sender: FDA-Public Use
  Company Number: US-B.I. PHARMACEUTICALS,INC./RIDGEFIELD-2010-BP-09700BP

PATIENT
  Age: 29 Year
  Sex: Male

DRUGS (6)
  1. MICARDIS HCT [Suspect]
     Indication: HYPERTENSION
     Route: 048
  2. ZOLOFT [Concomitant]
  3. ADDERALL 10 [Concomitant]
  4. EXCEDRIN (MIGRAINE) [Concomitant]
  5. ACETAMINOPHEN [Concomitant]
  6. FISH OIL [Concomitant]

REACTIONS (4)
  - ABDOMINAL PAIN UPPER [None]
  - BACK PAIN [None]
  - PALPITATIONS [None]
  - URINARY RETENTION [None]
